FAERS Safety Report 8143467-8 (Version None)
Quarter: 2012Q1

REPORT INFORMATION
  Report Type: 
  Country: None (occurrence: None)
  Receive Date: 20120217
  Receipt Date: 20120214
  Transmission Date: 20120608
  Serious: Yes (Death, Other)
  Sender: FDA-Public Use
  Company Number: JP-JNJFOC-20110303136

PATIENT
  Sex: Female
  Weight: 55 kg

DRUGS (23)
  1. PREDNISOLONE [Concomitant]
     Route: 048
     Dates: start: 20090616, end: 20090618
  2. MAGMITT [Concomitant]
     Indication: CONSTIPATION
     Route: 048
     Dates: start: 20090521, end: 20090624
  3. NAPROXEN [Concomitant]
     Route: 048
     Dates: start: 20090521, end: 20090624
  4. FLURBIPROFEN [Concomitant]
     Route: 042
     Dates: start: 20090626
  5. PYDOXAL [Concomitant]
     Route: 048
     Dates: end: 20090525
  6. PREDNISOLONE [Concomitant]
     Route: 048
     Dates: end: 20090521
  7. PREDNISOLONE [Concomitant]
     Indication: PROPHYLAXIS
     Route: 048
     Dates: start: 20090619, end: 20090619
  8. PREDNISOLONE [Concomitant]
     Route: 048
     Dates: start: 20090522, end: 20090522
  9. LASIX [Concomitant]
     Route: 048
     Dates: start: 20090616, end: 20090618
  10. IMIPENEM AND CILASTATIN SODIUM [Concomitant]
     Route: 042
     Dates: start: 20090717, end: 20090723
  11. DOXORUBICIN HCL [Suspect]
     Indication: UTERINE CANCER
     Route: 042
     Dates: start: 20090521, end: 20090521
  12. MUCOSTA [Concomitant]
     Indication: GASTRITIS
     Route: 048
     Dates: end: 20090622
  13. CEFOTIAM HYDROCHLORIDE [Concomitant]
     Route: 042
     Dates: start: 20090628, end: 20090709
  14. NEU-UP [Concomitant]
     Indication: BONE MARROW FAILURE
     Route: 042
     Dates: start: 20090630, end: 20090702
  15. DOXORUBICIN HCL [Suspect]
     Route: 042
     Dates: start: 20090617, end: 20090617
  16. FERROUS CITRATE [Concomitant]
     Indication: ANAEMIA
     Route: 048
     Dates: end: 20090624
  17. METHYCOBAL [Concomitant]
     Route: 048
     Dates: end: 20090624
  18. CEFAZOLIN SODIUM [Concomitant]
     Route: 048
     Dates: end: 20090624
  19. FIRSTCIN [Concomitant]
     Route: 042
     Dates: start: 20090710, end: 20090716
  20. GLYCYRRHIZIC ACID/GLYCINE/CYSTEINE [Concomitant]
     Indication: HEPATIC FUNCTION ABNORMAL
     Route: 042
     Dates: start: 20090703, end: 20090707
  21. PYDOXAL [Concomitant]
     Indication: PROPHYLAXIS
     Route: 048
     Dates: start: 20090616, end: 20090622
  22. FAMOTIDINE [Concomitant]
     Route: 042
     Dates: start: 20090617, end: 20090619
  23. DECADRON [Concomitant]
     Indication: PROPHYLAXIS
     Route: 042
     Dates: start: 20090617, end: 20090621

REACTIONS (3)
  - UTERINE CANCER [None]
  - HEPATIC FUNCTION ABNORMAL [None]
  - BONE MARROW FAILURE [None]
